FAERS Safety Report 18486239 (Version 6)
Quarter: 2023Q1

REPORT INFORMATION
  Report Type: Spontaneous
  Country: US (occurrence: US)
  Receive Date: 20201110
  Receipt Date: 20230309
  Transmission Date: 20230417
  Serious: Yes (Hospitalization)
  Sender: FDA-Public Use
  Company Number: US-PFIZER INC-2020432876

PATIENT
  Age: 53 Year
  Sex: Female
  Weight: 77.11 kg

DRUGS (2)
  1. DEPO-ESTRADIOL [Suspect]
     Active Substance: ESTRADIOL CYPIONATE
     Indication: Hysterectomy
     Dosage: 1 ML, MONTHLY
     Route: 030
     Dates: start: 1999, end: 20210517
  2. DEPO-ESTRADIOL [Suspect]
     Active Substance: ESTRADIOL CYPIONATE
     Indication: Hormone replacement therapy

REACTIONS (7)
  - Illness [Unknown]
  - Intentional product misuse [Unknown]
  - Panic attack [Unknown]
  - Asthma [Unknown]
  - Quality of life decreased [Unknown]
  - Insomnia [Unknown]
  - Hot flush [Unknown]
